FAERS Safety Report 12565610 (Version 1)
Quarter: 2016Q3

REPORT INFORMATION
  Report Type: Spontaneous
  Country: US (occurrence: US)
  Receive Date: 20160718
  Receipt Date: 20160718
  Transmission Date: 20161109
  Serious: No
  Sender: FDA-Public Use
  Company Number: US-BAUSCH-BL-2015-014539

PATIENT
  Age: 78 Year
  Sex: Female
  Weight: 75.82 kg

DRUGS (1)
  1. BESIVANCE [Suspect]
     Active Substance: BESIFLOXACIN
     Indication: INFECTION
     Dosage: ONE DROP TO THE RIGHT EYE.
     Route: 047
     Dates: start: 20150521, end: 20150527

REACTIONS (3)
  - Condition aggravated [Recovering/Resolving]
  - Asthenia [Recovering/Resolving]
  - Nausea [Recovering/Resolving]

NARRATIVE: CASE EVENT DATE: 2015
